FAERS Safety Report 9202663 (Version 3)
Quarter: 2013Q2

REPORT INFORMATION
  Report Type: Spontaneous
  Country: US (occurrence: US)
  Receive Date: 20130401
  Receipt Date: 20130612
  Transmission Date: 20140414
  Serious: Yes (Hospitalization)
  Sender: FDA-Public Use
  Company Number: US-GILEAD-2013-0072638

PATIENT
  Age: 39 Year
  Sex: Female

DRUGS (12)
  1. LETAIRIS [Suspect]
     Indication: PULMONARY HYPERTENSION
     Dosage: 5 MG, QD
     Route: 048
     Dates: start: 20130225
  2. LETAIRIS [Suspect]
     Indication: SCLERODERMA
  3. ASA [Concomitant]
  4. KLL [Concomitant]
  5. REGLAN                             /00041901/ [Concomitant]
  6. OMEPRAZOLE [Concomitant]
  7. LASIX                              /00032601/ [Concomitant]
  8. REVATIO [Concomitant]
  9. CELEXA                             /00582602/ [Concomitant]
  10. AMBIEN [Concomitant]
  11. LYRICA [Concomitant]
  12. CLARITIN                           /00413701/ [Concomitant]

REACTIONS (1)
  - Haematemesis [Unknown]
